FAERS Safety Report 11734312 (Version 2)
Quarter: 2015Q4

REPORT INFORMATION
  Report Type: Spontaneous
  Country: US (occurrence: US)
  Receive Date: 20151113
  Receipt Date: 20151203
  Transmission Date: 20160304
  Serious: Yes (Hospitalization)
  Sender: FDA-Public Use
  Company Number: US-BIOGENIDEC-2006BI016258

PATIENT
  Age: 26 Year
  Sex: Female

DRUGS (7)
  1. TYSABRI [Suspect]
     Active Substance: NATALIZUMAB
     Indication: MULTIPLE SCLEROSIS
     Route: 042
     Dates: start: 20061030
  2. CALCIUM SUPPLEMENT [Concomitant]
     Active Substance: CALCIUM
  3. BACLOFEN. [Concomitant]
     Active Substance: BACLOFEN
     Indication: MULTIPLE SCLEROSIS
  4. TYLENOL PM [Concomitant]
     Active Substance: ACETAMINOPHEN\DIPHENHYDRAMINE
  5. ORAL CONTRACEPTIVE NOS [Concomitant]
     Active Substance: UNSPECIFIED INGREDIENT
     Indication: CONTRACEPTION
  6. XANAX [Concomitant]
     Active Substance: ALPRAZOLAM
  7. POTASSIUM SUPPLEMENT [Concomitant]
     Active Substance: POTASSIUM

REACTIONS (10)
  - Supraventricular tachycardia [Unknown]
  - Diabetes mellitus [Unknown]
  - International normalised ratio increased [Recovered/Resolved]
  - Hepatic failure [Unknown]
  - Asthenia [Unknown]
  - Gait disturbance [Unknown]
  - Dehydration [Unknown]
  - Infrequent bowel movements [Unknown]
  - Hepatitis [Not Recovered/Not Resolved]
  - Vision blurred [Unknown]

NARRATIVE: CASE EVENT DATE: 20061031
